FAERS Safety Report 20467302 (Version 2)
Quarter: 2022Q2

REPORT INFORMATION
  Report Type: Other
  Country: DE (occurrence: None)
  Receive Date: 20220214
  Receipt Date: 20220622
  Transmission Date: 20220720
  Serious: Yes (Hospitalization)
  Sender: FDA-Public Use
  Company Number: DE-ROCHE-2947472

PATIENT
  Age: 27 Year
  Sex: Female
  Weight: 118 kg

DRUGS (6)
  1. OCRELIZUMAB [Suspect]
     Active Substance: OCRELIZUMAB
     Indication: Relapsing-remitting multiple sclerosis
     Route: 042
     Dates: start: 20200805, end: 20200805
  2. DIMETHINDENE [Concomitant]
     Active Substance: DIMETHINDENE
     Dates: start: 20200805, end: 20200805
  3. CORTISONE [Concomitant]
     Active Substance: CORTISONE
     Indication: Prophylaxis
     Dates: start: 20200805, end: 20200805
  4. LEVOTHYROXINE SODIUM [Concomitant]
     Active Substance: LEVOTHYROXINE SODIUM
     Dates: start: 2013
  5. ISOPHANE INSULIN [Concomitant]
     Active Substance: INSULIN NOS
     Dates: start: 202105
  6. FERROUS SULFATE [Concomitant]
     Active Substance: FERROUS SULFATE
     Dates: start: 20210727

REACTIONS (3)
  - Premature delivery [Unknown]
  - Placental insufficiency [Recovered/Resolved]
  - Maternal exposure before pregnancy [Unknown]

NARRATIVE: CASE EVENT DATE: 20210903
